FAERS Safety Report 7414821-4 (Version None)
Quarter: 2011Q2

REPORT INFORMATION
  Report Type: 
  Country: None (occurrence: None)
  Receive Date: 20110414
  Receipt Date: 20110408
  Transmission Date: 20111010
  Serious: Yes (Life-Threatening)
  Sender: FDA-Public Use
  Company Number: IT-TEVA-276189ISR

PATIENT
  Sex: Male

DRUGS (3)
  1. FLUOROURACIL [Suspect]
     Indication: COLON CANCER
     Dosage: 1 GRAM;
     Route: 042
     Dates: start: 20101127, end: 20110201
  2. OXALIPLATIN [Suspect]
     Indication: COLON CANCER
     Dosage: 85 MILLIGRAM;
     Route: 042
     Dates: start: 20101127, end: 20110201
  3. CALCIUM LEVOFOLINATE (LEVOFOLENE) [Concomitant]
     Route: 042
     Dates: start: 20101127, end: 20110201

REACTIONS (5)
  - ACUTE RESPIRATORY FAILURE [None]
  - PNEUMONIA [None]
  - THROMBOCYTOPENIA [None]
  - SEPTIC SHOCK [None]
  - FEBRILE NEUTROPENIA [None]
